FAERS Safety Report 19830388 (Version 1)
Quarter: 2021Q3

REPORT INFORMATION
  Report Type: Spontaneous
  Country: US (occurrence: US)
  Receive Date: 20210915
  Receipt Date: 20210915
  Transmission Date: 20211014
  Serious: Yes (Other)
  Sender: FDA-Public Use
  Company Number: None

PATIENT
  Age: 53 Year
  Sex: Male
  Weight: 103.5 kg

DRUGS (1)
  1. INFLECTRA [Suspect]
     Active Substance: INFLIXIMAB-DYYB
     Indication: COLITIS ULCERATIVE
     Dosage: ?          OTHER FREQUENCY:0,2,6 WEEKS;?
     Route: 042
     Dates: start: 20210611, end: 20210626

REACTIONS (9)
  - Headache [None]
  - Nausea [None]
  - Respiratory rate decreased [None]
  - Cyanosis [None]
  - Blood glucose increased [None]
  - Cold sweat [None]
  - Loss of consciousness [None]
  - Pallor [None]
  - Photophobia [None]

NARRATIVE: CASE EVENT DATE: 20210626
